FAERS Safety Report 17351683 (Version 1)
Quarter: 2020Q1

REPORT INFORMATION
  Report Type: Spontaneous
  Country: CA (occurrence: CA)
  Receive Date: 20200130
  Receipt Date: 20200130
  Transmission Date: 20200409
  Serious: Yes (Death, Hospitalization, Other)
  Sender: FDA-Public Use
  Company Number: CA-ALSI-202000041

PATIENT
  Age: 72 Year
  Sex: Male
  Weight: 56 kg

DRUGS (2)
  1. ESBRIET [Suspect]
     Active Substance: PIRFENIDONE
     Route: 048
  2. OXYGEN. [Suspect]
     Active Substance: OXYGEN
     Indication: PRODUCT USED FOR UNKNOWN INDICATION

REACTIONS (19)
  - Abdominal discomfort [Unknown]
  - Cough [Unknown]
  - Dry mouth [Unknown]
  - Dyspnoea [Unknown]
  - Hyperventilation [Unknown]
  - Pneumonia [Unknown]
  - Pulmonary congestion [Unknown]
  - Death [Fatal]
  - Chronic obstructive pulmonary disease [Unknown]
  - Fatigue [Unknown]
  - Decreased appetite [Unknown]
  - Pulmonary oedema [Unknown]
  - Respiratory disorder [Unknown]
  - Weight decreased [Unknown]
  - Oxygen saturation decreased [Unknown]
  - Pyrexia [Unknown]
  - Dyspnoea exertional [Unknown]
  - Insomnia [Unknown]
  - Productive cough [Unknown]
